FAERS Safety Report 7341377-7 (Version None)
Quarter: 2011Q1

REPORT INFORMATION
  Report Type: 
  Country: None (occurrence: None)
  Receive Date: 20110309
  Receipt Date: 20110304
  Transmission Date: 20110831
  Serious: Yes (Hospitalization, Other)
  Sender: FDA-Public Use
  Company Number: US-ABBOTT-11P-163-0709590-00

PATIENT
  Sex: Female
  Weight: 99.88 kg

DRUGS (6)
  1. DIOVAN [Concomitant]
     Indication: PRODUCT USED FOR UNKNOWN INDICATION
  2. XIBROM [Concomitant]
     Indication: UVEITIS
  3. COSOPT [Concomitant]
     Indication: UVEITIS
  4. PRED FORTE [Concomitant]
     Indication: UVEITIS
  5. HUMIRA [Suspect]
     Indication: RHEUMATOID ARTHRITIS
     Dates: start: 20100101
  6. PREDNISONE TAB [Concomitant]
     Indication: PRODUCT USED FOR UNKNOWN INDICATION
     Route: 048

REACTIONS (5)
  - FALL [None]
  - CARTILAGE INJURY [None]
  - INSOMNIA [None]
  - ARTHRALGIA [None]
  - DRUG DOSE OMISSION [None]
